FAERS Safety Report 4833461-4 (Version None)
Quarter: 2005Q4

REPORT INFORMATION
  Report Type: 
  Country: None (occurrence: None)
  Receive Date: 20051114
  Receipt Date: 20051102
  Transmission Date: 20060501
  Serious: Yes (Other)
  Sender: FDA-Public Use
  Company Number: 2004013492

PATIENT
  Sex: Female

DRUGS (6)
  1. NEURONTIN [Suspect]
     Indication: BACK PAIN
     Dates: start: 20021016, end: 20040518
  2. QUETIAPINE (QUETIAPINE) [Concomitant]
  3. TOPIRAMATE [Concomitant]
  4. CITALOPRAM (CITALOPRAM) [Concomitant]
  5. MORPHINE [Concomitant]
  6. OXYCODONE (OXYCODONE) [Concomitant]

REACTIONS (21)
  - BIPOLAR DISORDER [None]
  - BRAIN DAMAGE [None]
  - CLOSED HEAD INJURY [None]
  - CONDITION AGGRAVATED [None]
  - DEPRESSED LEVEL OF CONSCIOUSNESS [None]
  - DRUG DEPENDENCE [None]
  - DRUG WITHDRAWAL SYNDROME [None]
  - EMOTIONAL DISTRESS [None]
  - FEAR [None]
  - HALLUCINATION, AUDITORY [None]
  - HALLUCINATION, VISUAL [None]
  - INTENTIONAL SELF-INJURY [None]
  - MORBID THOUGHTS [None]
  - OFF LABEL USE [None]
  - PAIN [None]
  - PHARMACEUTICAL PRODUCT COMPLAINT [None]
  - PSYCHIATRIC SYMPTOM [None]
  - PSYCHOTIC DISORDER [None]
  - STUPOR [None]
  - SUICIDE ATTEMPT [None]
  - THANATOPHOBIA [None]
